FAERS Safety Report 18385333 (Version 1)
Quarter: 2020Q4

REPORT INFORMATION
  Report Type: Spontaneous
  Country: FR (occurrence: FR)
  Receive Date: 20201015
  Receipt Date: 20201015
  Transmission Date: 20210114
  Serious: Yes (Death, Life-Threatening, Hospitalization)
  Sender: FDA-Public Use
  Company Number: FR-ACCORD-204947

PATIENT
  Age: 66 Year
  Sex: Male
  Weight: 76 kg

DRUGS (10)
  1. VALSARTAN. [Concomitant]
     Active Substance: VALSARTAN
  2. ALIMTA [Suspect]
     Active Substance: PEMETREXED DISODIUM
     Indication: LUNG ADENOCARCINOMA STAGE IV
     Route: 041
     Dates: start: 20180510, end: 20180510
  3. INEXIUM [Concomitant]
     Active Substance: ESOMEPRAZOLE
     Dosage: STRENGTH: 40 MG
  4. CARBOPLATIN. [Suspect]
     Active Substance: CARBOPLATIN
     Indication: LUNG ADENOCARCINOMA STAGE IV
     Route: 041
     Dates: start: 20180510, end: 20180510
  5. NEURONTIN [Concomitant]
     Active Substance: GABAPENTIN
     Dosage: STRENGTH: 400 MG
  6. INNOHEP [Concomitant]
     Active Substance: TINZAPARIN SODIUM
  7. KARDEGIC [Concomitant]
     Active Substance: ASPIRIN DL-LYSINE
     Dosage: STRENGTH: 160 MG
  8. SPECIAFOLDINE [Concomitant]
     Active Substance: FOLIC ACID
     Dosage: STRENGTH: 0.4 MG
  9. TAHOR [Concomitant]
     Active Substance: ATORVASTATIN CALCIUM
     Dosage: STRENGTH: 10 MG
  10. ESIDREX [Concomitant]
     Active Substance: HYDROCHLOROTHIAZIDE
     Dosage: STRENGTH: 25 MG

REACTIONS (6)
  - Hyponatraemia [Recovered/Resolved]
  - Diarrhoea [Recovered/Resolved]
  - Pancytopenia [Recovered/Resolved]
  - General physical health deterioration [Recovered/Resolved]
  - Nausea [Recovered/Resolved]
  - Abdominal pain [Recovered/Resolved]

NARRATIVE: CASE EVENT DATE: 20180513
